FAERS Safety Report 5501139-X (Version None)
Quarter: 2007Q4

REPORT INFORMATION
  Report Type: 
  Country: None (occurrence: None)
  Receive Date: 20071026
  Receipt Date: 20071012
  Transmission Date: 20080405
  Serious: Yes (Hospitalization)
  Sender: FDA-Public Use
  Company Number: US021463

PATIENT
  Age: 46 Year
  Sex: Male
  Weight: 68.0396 kg

DRUGS (8)
  1. ACTIQ [Suspect]
     Indication: BACK PAIN
     Dosage: 400 UG BID BUCCAL
     Route: 002
     Dates: start: 20020101
  2. ACTIQ [Suspect]
     Indication: PAIN IN EXTREMITY
     Dosage: 400 UG BID BUCCAL
     Route: 002
     Dates: start: 20020101
  3. ACTIQ [Suspect]
     Indication: BACK PAIN
     Dosage: 1600 UG BID BUCCAL
     Route: 002
     Dates: end: 20070703
  4. ACTIQ [Suspect]
     Indication: PAIN IN EXTREMITY
     Dosage: 1600 UG BID BUCCAL
     Route: 002
     Dates: end: 20070703
  5. SUFENTANIL CITRATE [Concomitant]
  6. PAXIL [Concomitant]
  7. KLONOPIN [Concomitant]
  8. LORTAB [Concomitant]

REACTIONS (3)
  - BEDRIDDEN [None]
  - DENTAL CARIES [None]
  - ECONOMIC PROBLEM [None]
